FAERS Safety Report 4956361-8 (Version None)
Quarter: 2006Q1

REPORT INFORMATION
  Report Type: 
  Country: None (occurrence: None)
  Receive Date: 20060329
  Receipt Date: 20051011
  Transmission Date: 20060701
  Serious: Yes (Other)
  Sender: FDA-Public Use
  Company Number: PHEH2005US11439

PATIENT
  Age: 81 Year
  Sex: Male

DRUGS (6)
  1. ACIPHEX [Concomitant]
     Indication: GASTROOESOPHAGEAL REFLUX DISEASE
     Dosage: 20 MG, QD
     Dates: start: 20040901
  2. DEXAMETHASONE TAB [Concomitant]
     Indication: PROSTATE CANCER
     Dosage: 1 MG / DAY
     Dates: start: 20040917
  3. PAMIDRONATE DISODIUM [Suspect]
     Indication: PROSTATE CANCER METASTATIC
     Dosage: 90 MG, X 3 MOS, MONTHLY
     Dates: start: 20041201, end: 20050901
  4. PAMIDRONATE DISODIUM [Suspect]
     Dosage: 60 MG, X 6 MOS., Q 6 WEEKS
  5. DOCETAXEL [Concomitant]
     Indication: PROSTATE CANCER
     Dosage: 75 MG/M2, UNK
     Dates: start: 20040917, end: 20051015
  6. ZOMETA [Suspect]
     Indication: PROSTATE CANCER METASTATIC
     Dosage: 4 MG, MONTHLY
     Dates: start: 20040801, end: 20041001

REACTIONS (5)
  - DRY SOCKET [None]
  - GASTROOESOPHAGEAL REFLUX DISEASE [None]
  - GLUCOSE TOLERANCE IMPAIRED [None]
  - IMPAIRED HEALING [None]
  - TOOTH EXTRACTION [None]
